FAERS Safety Report 5089719-X (Version None)
Quarter: 2006Q3

REPORT INFORMATION
  Report Type: 
  Country: None (occurrence: None)
  Receive Date: 20060828
  Receipt Date: 20060817
  Transmission Date: 20061208
  Serious: Yes (Hospitalization, Other)
  Sender: FDA-Public Use
  Company Number: PHFR2006GB02580

PATIENT

DRUGS (1)
  1. TEGRETOL [Suspect]
     Indication: EPILEPSY
     Dosage: 1.0G / DAY
     Route: 065

REACTIONS (3)
  - DRUG LEVEL INCREASED [None]
  - RESPIRATORY TRACT INFECTION [None]
  - SOMNOLENCE [None]
